FAERS Safety Report 7018162-9 (Version None)
Quarter: 2010Q3

REPORT INFORMATION
  Report Type: 
  Country: None (occurrence: None)
  Receive Date: 20100927
  Receipt Date: 20100927
  Transmission Date: 20110219
  Serious: No
  Sender: FDA-Public Use
  Company Number: None

PATIENT
  Age: 46 Year
  Sex: Female
  Weight: 109 kg

DRUGS (1)
  1. LEVAQUIN [Suspect]
     Indication: PREOPERATIVE CARE
     Dosage: 500MG ONE TIME IV
     Route: 042
     Dates: start: 20100915, end: 20100915

REACTIONS (2)
  - ERYTHEMA [None]
  - PRURITUS [None]
